FAERS Safety Report 23823165 (Version 3)
Quarter: 2024Q2

REPORT INFORMATION
  Report Type: Spontaneous
  Country: US (occurrence: US)
  Receive Date: 20240507
  Receipt Date: 20240614
  Transmission Date: 20240716
  Serious: No
  Sender: FDA-Public Use
  Company Number: US-TAKEDA-2024TUS042822

PATIENT
  Age: 7 Year
  Sex: Male

DRUGS (3)
  1. VYVANSE [Suspect]
     Active Substance: LISDEXAMFETAMINE DIMESYLATE
     Indication: Attention deficit hyperactivity disorder
     Dosage: 4 DOSAGE FORM
     Route: 065
  2. VYVANSE [Suspect]
     Active Substance: LISDEXAMFETAMINE DIMESYLATE
     Dosage: 60 MILLIGRAM
     Route: 065
  3. FOCALIN [Suspect]
     Active Substance: DEXMETHYLPHENIDATE HYDROCHLORIDE
     Indication: Attention deficit hyperactivity disorder
     Dosage: 5 MILLIGRAM
     Route: 065

REACTIONS (13)
  - Eating disorder [Unknown]
  - Feeling abnormal [Unknown]
  - Emotional disorder [Unknown]
  - Movement disorder [Unknown]
  - Speech disorder [Unknown]
  - Depressed mood [Unknown]
  - Abdominal pain upper [Unknown]
  - Dizziness [Unknown]
  - Tremor [Unknown]
  - Nausea [Unknown]
  - Extra dose administered [Unknown]
  - Wrong product administered [Unknown]
  - Product dispensing error [Unknown]
